FAERS Safety Report 13835136 (Version 2)
Quarter: 2018Q2

REPORT INFORMATION
  Report Type: Spontaneous
  Country: DE (occurrence: DE)
  Receive Date: 20170804
  Receipt Date: 20180619
  Transmission Date: 20180711
  Serious: Yes (Hospitalization, Other)
  Sender: FDA-Public Use
  Company Number: DE-ACCORD-056846

PATIENT
  Age: 20 Year
  Sex: Male

DRUGS (2)
  1. SERTRALINE [Suspect]
     Active Substance: SERTRALINE HYDROCHLORIDE
     Indication: DEPRESSIVE SYMPTOM
  2. ZIPRASIDONE/ZIPRASIDONE HYDROCHLORIDE/ZIPRASIDONE MESILATE [Suspect]
     Active Substance: ZIPRASIDONE HYDROCHLORIDE\ZIPRASIDONE MESYLATE
     Indication: SCHIZOPHRENIA

REACTIONS (2)
  - Cardiac arrest [Unknown]
  - Serotonin syndrome [Recovering/Resolving]
